FAERS Safety Report 7546094-6 (Version None)
Quarter: 2011Q2

REPORT INFORMATION
  Report Type: 
  Country: None (occurrence: None)
  Receive Date: 20110524
  Receipt Date: 20110304
  Transmission Date: 20111010
  Serious: No
  Sender: FDA-Public Use
  Company Number: 028808

PATIENT
  Sex: Female
  Weight: 86.2 kg

DRUGS (2)
  1. AMBIEN [Concomitant]
  2. CIMZIA [Suspect]
     Indication: CROHN'S DISEASE
     Dosage: (2 SHOTS SUBCUTANEOUS)
     Route: 058
     Dates: start: 20110303

REACTIONS (1)
  - SWELLING [None]
